FAERS Safety Report 23291490 (Version 1)
Quarter: 2023Q4

REPORT INFORMATION
  Report Type: Spontaneous
  Country: DK (occurrence: DK)
  Receive Date: 20231213
  Receipt Date: 20231213
  Transmission Date: 20240109
  Serious: Yes (Hospitalization)
  Sender: FDA-Public Use
  Company Number: None

PATIENT
  Age: 78 Year
  Sex: Female

DRUGS (1)
  1. DONEPEZIL HYDROCHLORIDE [Suspect]
     Active Substance: DONEPEZIL HYDROCHLORIDE
     Indication: Dementia Alzheimer^s type
     Dosage: STRENGTH: 10 MG. INCREASED FROM 5 MG ON 15OCT2023
     Dates: start: 20230915, end: 20231027

REACTIONS (1)
  - Sexually inappropriate behaviour [Recovering/Resolving]

NARRATIVE: CASE EVENT DATE: 20231015
